FAERS Safety Report 11482298 (Version 2)
Quarter: 2015Q3

REPORT INFORMATION
  Report Type: Spontaneous
  Country: US (occurrence: US)
  Receive Date: 20150903
  Receipt Date: 20150903
  Transmission Date: 20151125
  Serious: Yes (Other)
  Sender: FDA-Public Use
  Company Number: US-ELI_LILLY_AND_COMPANY-US201204002743

PATIENT
  Sex: Female

DRUGS (3)
  1. CYMBALTA [Suspect]
     Active Substance: DULOXETINE HYDROCHLORIDE
     Indication: DEPRESSION
     Dosage: 30 MG, QD
  2. TRAMADOL                           /00599201/ [Concomitant]
  3. CITALOPRAM                         /00582601/ [Concomitant]

REACTIONS (3)
  - Serotonin syndrome [Unknown]
  - Palpitations [Unknown]
  - Insomnia [Unknown]
